FAERS Safety Report 19096703 (Version 1)
Quarter: 2021Q2

REPORT INFORMATION
  Report Type: Report from Study
  Country: CA (occurrence: CA)
  Receive Date: 20210406
  Receipt Date: 20210406
  Transmission Date: 20210717
  Serious: Yes (Other)
  Sender: FDA-Public Use
  Company Number: CA-JNJFOC-20210402343

PATIENT
  Age: 17 Year
  Sex: Male
  Weight: 81 kg

DRUGS (2)
  1. PREDNISONE. [Concomitant]
     Active Substance: PREDNISONE
     Indication: PRODUCT USED FOR UNKNOWN INDICATION
     Dosage: 5 MG/WEEK?TAPERING DOSE
     Route: 048
  2. REMICADE [Suspect]
     Active Substance: INFLIXIMAB
     Indication: COLITIS ULCERATIVE
     Dosage: ON 31?MAR?2021, RECEIVED 2ND INFLIXIMAB INFUSION OF 800 MG
     Route: 042
     Dates: start: 20210326

REACTIONS (7)
  - Off label use [Unknown]
  - Pain [Recovered/Resolved]
  - Frequent bowel movements [Unknown]
  - General physical health deterioration [Unknown]
  - Incorrect drug administration rate [Unknown]
  - Haematochezia [Unknown]
  - Myalgia [Recovered/Resolved]

NARRATIVE: CASE EVENT DATE: 202103
